FAERS Safety Report 4871812-5 (Version None)
Quarter: 2006Q1

REPORT INFORMATION
  Report Type: 
  Country: None (occurrence: None)
  Receive Date: 20060104
  Receipt Date: 20051229
  Transmission Date: 20060701
  Serious: Yes (Hospitalization)
  Sender: FDA-Public Use
  Company Number: FR-LMS-050179

PATIENT
  Age: 63 Year
  Sex: Female

DRUGS (7)
  1. NABUCOX [Suspect]
     Route: 048
     Dates: start: 20051027, end: 20051110
  2. ACTONEL [Concomitant]
     Dosage: 5MG PER DAY
     Route: 048
     Dates: end: 20051124
  3. CIPROFIBRATE [Concomitant]
     Dosage: 100MG PER DAY
     Route: 048
     Dates: end: 20051124
  4. DELURSAN [Concomitant]
     Dosage: 250MG TWICE PER DAY
     Route: 048
     Dates: end: 20051124
  5. DIOSMINE [Concomitant]
     Dosage: 600MG PER DAY
     Route: 048
     Dates: end: 20051124
  6. NEXIUM [Concomitant]
     Route: 048
  7. PERIDYS [Concomitant]
     Route: 048

REACTIONS (6)
  - ANOREXIA [None]
  - CHROMATURIA [None]
  - FAECES DISCOLOURED [None]
  - HEPATITIS [None]
  - HEPATITIS CHOLESTATIC [None]
  - WEIGHT DECREASED [None]
